FAERS Safety Report 10168614 (Version 1)
Quarter: 2014Q2

REPORT INFORMATION
  Report Type: Spontaneous
  Country: GB (occurrence: GB)
  Receive Date: 20140513
  Receipt Date: 20140513
  Transmission Date: 20141212
  Serious: Yes (Other)
  Sender: FDA-Public Use
  Company Number: GB-JNJFOC-20140503220

PATIENT
  Sex: Female

DRUGS (1)
  1. RISPERDAL CONSTA [Suspect]
     Indication: PRODUCT USED FOR UNKNOWN INDICATION
     Route: 030
     Dates: start: 201403

REACTIONS (9)
  - Speech disorder [Unknown]
  - Cognitive disorder [Unknown]
  - Confusional state [Unknown]
  - Personality change [Unknown]
  - Hypokinesia [Unknown]
  - Feeling abnormal [Unknown]
  - Abnormal behaviour [Unknown]
  - Depressed mood [Unknown]
  - Drug administration error [Unknown]
